FAERS Safety Report 15060302 (Version 1)
Quarter: 2018Q2

REPORT INFORMATION
  Report Type: Spontaneous
  Country: US (occurrence: US)
  Receive Date: 20180605
  Receipt Date: 20180605
  Transmission Date: 20180711
  Serious: Yes (Other)
  Sender: FDA-Public Use
  Company Number: None

PATIENT
  Age: 52 Year
  Sex: Male

DRUGS (1)
  1. BICILLIN L-A [Suspect]
     Active Substance: PENICILLIN G BENZATHINE
     Indication: SYPHILIS
     Dosage: ?          OTHER DOSE:2.4 MU;?
     Route: 030
     Dates: start: 20171107

REACTIONS (3)
  - Injection site mass [None]
  - Injection site pain [None]
  - Injection site scar [None]

NARRATIVE: CASE EVENT DATE: 20171107
